FAERS Safety Report 21334947 (Version 1)
Quarter: 2022Q3

REPORT INFORMATION
  Report Type: Spontaneous
  Country: US (occurrence: None)
  Receive Date: 20220914
  Receipt Date: 20220914
  Transmission Date: 20221027
  Serious: Yes (Hospitalization)
  Sender: FDA-Public Use
  Company Number: None

PATIENT
  Age: 59 Year
  Sex: Female
  Weight: 74.4 kg

DRUGS (2)
  1. CARBOPLATIN [Suspect]
     Active Substance: CARBOPLATIN
     Dates: end: 20220907
  2. TAXOL [Suspect]
     Active Substance: PACLITAXEL
     Dates: end: 20220907

REACTIONS (2)
  - Nausea [None]
  - Dysphagia [None]

NARRATIVE: CASE EVENT DATE: 20220829
